FAERS Safety Report 4496933-0 (Version None)
Quarter: 2004Q4

REPORT INFORMATION
  Report Type: 
  Country: None (occurrence: None)
  Receive Date: 20041109
  Receipt Date: 20041006
  Transmission Date: 20050328
  Serious: Yes (Life-Threatening, Hospitalization)
  Sender: FDA-Public Use
  Company Number: US-MERCK-0410USA00959

PATIENT
  Age: 57 Year
  Sex: Male

DRUGS (5)
  1. VIOXX [Suspect]
     Indication: RHEUMATOID ARTHRITIS
     Route: 048
     Dates: start: 20020101, end: 20040101
  2. METHOTREXATE [Concomitant]
     Route: 065
  3. FOLIC ACID [Concomitant]
     Route: 065
  4. ASPIRIN [Concomitant]
     Route: 065
  5. PLAQUENIL [Concomitant]
     Route: 065

REACTIONS (1)
  - ACUTE MYOCARDIAL INFARCTION [None]
